FAERS Safety Report 6279312-5 (Version None)
Quarter: 2009Q3

REPORT INFORMATION
  Report Type: 
  Country: None (occurrence: None)
  Receive Date: 20090723
  Receipt Date: 20080916
  Transmission Date: 20100115
  Serious: No
  Sender: FDA-Public Use
  Company Number: US-AMGEN-KDL303125

PATIENT
  Sex: Female
  Weight: 64.3 kg

DRUGS (15)
  1. PROCRIT [Suspect]
     Indication: RENAL FAILURE CHRONIC
     Dates: start: 20080812
  2. ACETAMINOPHEN [Concomitant]
  3. ATENOLOL [Concomitant]
  4. COMBIVENT [Concomitant]
  5. LASIX [Concomitant]
  6. LIPITOR [Concomitant]
  7. QUININE SULFATE [Concomitant]
  8. AMILORIDE HYDROCHLORIDE [Concomitant]
  9. SODIUM BICARBONATE [Concomitant]
  10. ASPIRIN [Concomitant]
  11. LEVOTHYROXINE SODIUM [Concomitant]
  12. SLOW-MAG [Concomitant]
  13. PROTONIX [Concomitant]
  14. CALCITRIOL [Concomitant]
  15. COUMADIN [Concomitant]

REACTIONS (2)
  - HEADACHE [None]
  - MALAISE [None]
